FAERS Safety Report 5441826-5 (Version None)
Quarter: 2007Q3

REPORT INFORMATION
  Report Type: 
  Country: None (occurrence: None)
  Receive Date: 20070829
  Receipt Date: 20070822
  Transmission Date: 20080115
  Serious: Yes (Hospitalization)
  Sender: FDA-Public Use
  Company Number: 2007SP016991

PATIENT
  Age: 70 Year
  Sex: Male
  Weight: 75.3 kg

DRUGS (2)
  1. TEMOZOLOMIDE [Suspect]
     Indication: GLIOBLASTOMA MULTIFORME
     Dosage: PO, 1600 MG, PO
     Route: 048
     Dates: start: 20070817, end: 20070820
  2. TEMOZOLOMIDE [Suspect]
     Indication: GLIOBLASTOMA MULTIFORME
     Dosage: PO, 1600 MG, PO
     Route: 048
     Dates: start: 20070205

REACTIONS (1)
  - PULMONARY EMBOLISM [None]
